FAERS Safety Report 14242581 (Version 1)
Quarter: 2017Q4

REPORT INFORMATION
  Report Type: Spontaneous
  Country: US (occurrence: US)
  Receive Date: 20171201
  Receipt Date: 20171201
  Transmission Date: 20180321
  Serious: Yes (Life-Threatening, Hospitalization, Other)
  Sender: FDA-Public Use
  Company Number: US-AXELLIA-001193

PATIENT
  Age: 52 Year
  Sex: Male

DRUGS (2)
  1. PIPERACILLIN/TAZOBACTAM [Concomitant]
     Indication: PROPHYLAXIS
  2. VANCOMYCIN [Suspect]
     Active Substance: VANCOMYCIN
     Indication: STAPHYLOCOCCAL INFECTION
     Route: 042

REACTIONS (6)
  - Mental disorder [Recovering/Resolving]
  - Liver function test increased [Recovering/Resolving]
  - Drug reaction with eosinophilia and systemic symptoms [Recovering/Resolving]
  - Blood creatinine increased [Recovering/Resolving]
  - Human herpesvirus 6 infection [Recovering/Resolving]
  - Epstein-Barr virus infection [Recovering/Resolving]
